FAERS Safety Report 5257377-7 (Version None)
Quarter: 2007Q1

REPORT INFORMATION
  Report Type: 
  Country: None (occurrence: None)
  Receive Date: 20070307
  Receipt Date: 20070223
  Transmission Date: 20070707
  Serious: Yes (Other)
  Sender: FDA-Public Use
  Company Number: NL-MERCK-0702NLD00027

PATIENT
  Sex: Female

DRUGS (1)
  1. HYZAAR [Suspect]
     Route: 065

REACTIONS (2)
  - ABORTION SPONTANEOUS [None]
  - DRUG EXPOSURE DURING PREGNANCY [None]
